FAERS Safety Report 22599628 (Version 1)
Quarter: 2023Q2

REPORT INFORMATION
  Report Type: Spontaneous
  Country: US (occurrence: US)
  Receive Date: 20230614
  Receipt Date: 20230614
  Transmission Date: 20230722
  Serious: No
  Sender: FDA-Public Use
  Company Number: US-AUROBINDO-AUR-APL-2022-051115

PATIENT
  Age: 63 Year
  Sex: Male
  Weight: 70.295 kg

DRUGS (1)
  1. ESOMEPRAZOLE MAGNESIUM [Suspect]
     Active Substance: ESOMEPRAZOLE MAGNESIUM
     Indication: Reflux gastritis
     Dosage: UNK, ONCE A DAY
     Route: 048
     Dates: start: 20221011

REACTIONS (1)
  - Drug ineffective [Recovered/Resolved]
